FAERS Safety Report 8511172-1 (Version None)
Quarter: 2012Q3

REPORT INFORMATION
  Report Type: 
  Country: None (occurrence: None)
  Receive Date: 20120716
  Receipt Date: 20120709
  Transmission Date: 20120928
  Serious: Yes (Hospitalization, Other)
  Sender: FDA-Public Use
  Company Number: US-JNJFOC-20120311852

PATIENT
  Age: 22 Year
  Sex: Female

DRUGS (3)
  1. TYLENOL W/ CODEINE NO. 3 [Suspect]
     Indication: TOOTHACHE
     Dosage: 6-8 TABLETS PER DAY FOR 10-14 DAYS
     Route: 048
  2. ACETAMINOPHEN [Suspect]
     Indication: TOOTHACHE
     Dosage: 12 TABLETS FOR 10-14 DAYS
     Route: 048
  3. MULTI-VITAMINS [Concomitant]
     Indication: PREGNANCY

REACTIONS (6)
  - FOETAL DEATH [None]
  - ACCIDENTAL OVERDOSE [None]
  - ACUTE HEPATIC FAILURE [None]
  - MATERNAL EXPOSURE DURING PREGNANCY [None]
  - CHEST PAIN [None]
  - DRUG ADMINISTRATION ERROR [None]
